FAERS Safety Report 25389806 (Version 1)
Quarter: 2025Q2

REPORT INFORMATION
  Report Type: Spontaneous
  Country: SI (occurrence: SI)
  Receive Date: 20250603
  Receipt Date: 20250603
  Transmission Date: 20250717
  Serious: Yes (Other)
  Sender: EXELIXIS
  Company Number: SI-IPSEN Group, Research and Development-2025-12536

PATIENT
  Age: 65 Year
  Sex: Male

DRUGS (1)
  1. CABOMETYX [Suspect]
     Active Substance: CABOZANTINIB S-MALATE
     Indication: Metastatic renal cell carcinoma
     Route: 065
     Dates: start: 2019

REACTIONS (2)
  - Abdominal wall abscess [Unknown]
  - Colonic fistula [Unknown]

NARRATIVE: CASE EVENT DATE: 20190101
